FAERS Safety Report 19826970 (Version 1)
Quarter: 2021Q3

REPORT INFORMATION
  Report Type: Spontaneous
  Country: CN (occurrence: CN)
  Receive Date: 20210914
  Receipt Date: 20210914
  Transmission Date: 20211014
  Serious: Yes (Hospitalization, Other)
  Sender: FDA-Public Use
  Company Number: CN-MACLEODS PHARMACEUTICALS US LTD-MAC2021032638

PATIENT

DRUGS (14)
  1. ISONIAZID 300 MG [Suspect]
     Active Substance: ISONIAZID
     Indication: TUBERCULOUS PLEURISY
     Dosage: 0.3 GRAM, QD
     Route: 065
  2. BASILIXIMAB [Suspect]
     Active Substance: BASILIXIMAB
     Indication: IMMUNOSUPPRESSION
     Dosage: UNK
     Route: 065
  3. LINEZOLID 600 MG [Suspect]
     Active Substance: LINEZOLID
     Indication: TUBERCULOUS PLEURISY
     Dosage: 0.6 GRAM, QD
     Route: 048
  4. RIFAMPICIN 450 MG [Suspect]
     Active Substance: RIFAMPIN
     Indication: TUBERCULOUS PLEURISY
     Dosage: 0.45 GRAM, QD
     Route: 065
  5. MYCOPHENOLATE SODIUM [Suspect]
     Active Substance: MYCOPHENOLATE SODIUM
     Indication: IMMUNOSUPPRESSION
     Dosage: UNK
     Route: 065
  6. LEVOFLOXACIN. [Suspect]
     Active Substance: LEVOFLOXACIN
     Indication: TUBERCULOUS PLEURISY
     Dosage: 0.4 GRAM
     Route: 042
  7. PYRAZINAMIDE 500 MG [Suspect]
     Active Substance: PYRAZINAMIDE
     Indication: TUBERCULOUS PLEURISY
     Dosage: 0.5 GRAM, TID
     Route: 065
  8. MEROPENEM. [Suspect]
     Active Substance: MEROPENEM
     Indication: TUBERCULOUS PLEURISY
     Dosage: 1 GRAM, TID, Q8 H
     Route: 042
  9. LEVOFLOXACIN. [Suspect]
     Active Substance: LEVOFLOXACIN
     Dosage: 500 MILLIGRAM, QD
     Route: 048
  10. PYRIDOXINE [Suspect]
     Active Substance: PYRIDOXINE
     Indication: TUBERCULOUS PLEURISY
     Dosage: 100 MILLIGRAM, TID
     Route: 048
  11. METHYLPREDNISOLONE. [Suspect]
     Active Substance: METHYLPREDNISOLONE
     Indication: IMMUNOSUPPRESSION
     Dosage: UNK
     Route: 065
  12. TACROLIMUS. [Suspect]
     Active Substance: TACROLIMUS
     Indication: IMMUNOSUPPRESSION
     Dosage: UNK
     Route: 065
  13. HEPARIN [Suspect]
     Active Substance: HEPARIN SODIUM
     Indication: ANTICOAGULANT THERAPY
     Dosage: UNK
     Route: 065
  14. AMIKACIN. [Suspect]
     Active Substance: AMIKACIN
     Indication: TUBERCULOUS PLEURISY
     Dosage: 0.4 GRAM, QD
     Route: 042

REACTIONS (4)
  - Maternal exposure during pregnancy [Unknown]
  - Abortion induced [Unknown]
  - Hepatotoxicity [Recovered/Resolved]
  - Acute hepatic failure [Recovered/Resolved]
